FAERS Safety Report 9412421 (Version 1)
Quarter: 2013Q2

REPORT INFORMATION
  Report Type: Spontaneous
  Country: US (occurrence: None)
  Receive Date: 20130607
  Receipt Date: 20130607
  Transmission Date: 20140414
  Serious: Yes (Other)
  Sender: FDA-Public Use
  Company Number: 54973 AE # 1386

PATIENT
  Age: 6 Month
  Sex: Male

DRUGS (1)
  1. HYLAND^S BABY TEETHING TABLETS [Suspect]
     Indication: TEETHING
     Dosage: 2-3 TABS ONCE DAY X 2WKS

REACTIONS (4)
  - Constipation [None]
  - Dry skin [None]
  - Agitation neonatal [None]
  - Eye disorder [None]
